FAERS Safety Report 8721031 (Version 4)
Quarter: 2013Q3

REPORT INFORMATION
  Report Type: Report from Study
  Country: US (occurrence: US)
  Receive Date: 20120813
  Receipt Date: 20130730
  Transmission Date: 20140515
  Serious: Yes (Hospitalization)
  Sender: FDA-Public Use
  Company Number: US-PFIZER INC-2012191241

PATIENT
  Age: 55 Year
  Sex: Male

DRUGS (13)
  1. RAMIPRIL [Suspect]
     Dosage: UNK
     Route: 065
  2. GLIPIZIDE [Suspect]
     Indication: TYPE 2 DIABETES MELLITUS
     Dosage: 10 MG, UNK
     Dates: start: 20120719, end: 20120719
  3. METFORMIN HYDROCHLORIDE [Suspect]
     Indication: TYPE 2 DIABETES MELLITUS
     Dosage: 2000 MG, UNK
     Route: 065
  4. SAXAGLIPTIN [Suspect]
     Indication: TYPE 2 DIABETES MELLITUS
     Dosage: UNK
     Dates: start: 20110426
  5. ACTOS [Suspect]
     Indication: TYPE 2 DIABETES MELLITUS
     Dosage: 15 MG, UNK
     Route: 065
  6. PLACEBO [Suspect]
     Indication: TYPE 2 DIABETES MELLITUS
     Dosage: UNK
     Route: 065
     Dates: start: 20110426
  7. HUMULIN [Suspect]
     Indication: TYPE 2 DIABETES MELLITUS
     Dosage: 100 IU, UNK
     Dates: start: 20120719, end: 20120724
  8. ACETAMINOPHEN [Suspect]
     Indication: PRODUCT USED FOR UNKNOWN INDICATION
     Dosage: 650 MG, UNK
     Route: 065
     Dates: start: 20120719, end: 20120719
  9. PERCOCET [Suspect]
     Indication: PRODUCT USED FOR UNKNOWN INDICATION
     Dosage: 10 MG, UNK
     Route: 065
     Dates: start: 20120721, end: 20120722
  10. NORCO [Suspect]
     Indication: PRODUCT USED FOR UNKNOWN INDICATION
     Dosage: 7.5 MG, UNK
     Route: 065
     Dates: start: 20120720, end: 20120721
  11. PIOGLITAZONE [Suspect]
     Indication: TYPE 2 DIABETES MELLITUS
     Dosage: 15 MG, UNK
     Route: 065
  12. ACETYLSALICYLIC ACID [Concomitant]
  13. TRAMADOL [Concomitant]
     Dosage: UNK
     Dates: start: 20120721, end: 20120724

REACTIONS (2)
  - Renal failure acute [Recovered/Resolved]
  - Confusional state [Recovered/Resolved]
